FAERS Safety Report 8323388-8 (Version None)
Quarter: 2012Q2

REPORT INFORMATION
  Report Type: 
  Country: None (occurrence: None)
  Receive Date: 20120430
  Receipt Date: 20120419
  Transmission Date: 20120825
  Serious: Yes (Other)
  Sender: FDA-Public Use
  Company Number: US-ELI_LILLY_AND_COMPANY-US201204007465

PATIENT
  Sex: Female

DRUGS (13)
  1. IMDUR [Concomitant]
  2. MORPHINE SULFATE [Concomitant]
  3. LEDERDERM [Concomitant]
  4. XOPENEX HFA [Concomitant]
  5. LUNESTA [Concomitant]
  6. PREDNISONE [Concomitant]
  7. GABAPENTIN [Concomitant]
  8. TESSALON [Concomitant]
  9. SPIRIVA [Concomitant]
  10. FUROSEMIDE [Concomitant]
  11. FLUOXETINE [Concomitant]
     Dosage: UNK
  12. CYMBALTA [Suspect]
     Indication: ANXIETY
     Dosage: 30 MG, QD
     Dates: start: 20080701, end: 20120330
  13. PRILOSEC [Concomitant]

REACTIONS (23)
  - OESOPHAGEAL DISORDER [None]
  - INSOMNIA [None]
  - TREMOR [None]
  - DYSPHAGIA [None]
  - AGITATION [None]
  - CHRONIC OBSTRUCTIVE PULMONARY DISEASE [None]
  - CRYING [None]
  - SPEECH DISORDER [None]
  - CARDIAC FAILURE [None]
  - ANXIETY [None]
  - DIARRHOEA [None]
  - DRUG WITHDRAWAL SYNDROME [None]
  - PARANOIA [None]
  - NAUSEA [None]
  - VOMITING [None]
  - RESTLESSNESS [None]
  - MENTAL IMPAIRMENT [None]
  - CORONARY ARTERY DISEASE [None]
  - GASTROOESOPHAGEAL REFLUX DISEASE [None]
  - CONFUSIONAL STATE [None]
  - CLOSTRIDIAL INFECTION [None]
  - BRONCHITIS [None]
  - IRRITABILITY [None]
